FAERS Safety Report 6819637-5 (Version None)
Quarter: 2010Q3

REPORT INFORMATION
  Report Type: 
  Country: None (occurrence: None)
  Receive Date: 20100707
  Receipt Date: 20100628
  Transmission Date: 20110219
  Serious: Yes (Hospitalization, Other)
  Sender: FDA-Public Use
  Company Number: US-CELGENEUS-163-21880-10062908

PATIENT
  Age: 60 Year
  Sex: Male
  Weight: 81.72 kg

DRUGS (1)
  1. REVLIMID [Suspect]
     Indication: MULTIPLE MYELOMA
     Route: 048
     Dates: start: 20100322, end: 20100530

REACTIONS (8)
  - CANDIDA SEPSIS [None]
  - CANDIDIASIS [None]
  - CARDIAC FAILURE CONGESTIVE [None]
  - DEEP VEIN THROMBOSIS [None]
  - DYSPHAGIA [None]
  - DYSPNOEA [None]
  - INTRACARDIAC THROMBUS [None]
  - SKIN ULCER [None]
